FAERS Safety Report 9017242 (Version 1)
Quarter: 2013Q1

REPORT INFORMATION
  Report Type: Spontaneous
  Country: GB (occurrence: GB)
  Receive Date: 20130117
  Receipt Date: 20130117
  Transmission Date: 20140127
  Serious: Yes (Hospitalization, Other)
  Sender: FDA-Public Use
  Company Number: GB-B.I. PHARMACEUTICALS,INC./RIDGEFIELD-2013-UK-00050UK

PATIENT
  Age: 75 Year
  Sex: Male
  Weight: 58 kg

DRUGS (5)
  1. PRADAXA [Suspect]
     Indication: ANTICOAGULANT THERAPY
     Dosage: 150 MG
     Route: 048
     Dates: start: 20120310, end: 20120408
  2. DEXAMETHASONE [Concomitant]
     Dosage: 2 MG
     Route: 048
     Dates: end: 20120331
  3. LAMOTRIGINE [Concomitant]
     Indication: CONVULSION
     Dosage: 50 MG
     Route: 048
     Dates: end: 20120309
  4. PARACETAMOL [Concomitant]
  5. ZOPICLONE [Concomitant]
     Dosage: 3.75 MG
     Route: 048

REACTIONS (3)
  - Haemorrhage [Recovered/Resolved]
  - Haematoma [Recovered/Resolved]
  - Sepsis [Recovered/Resolved]
